FAERS Safety Report 5897704-0 (Version None)
Quarter: 2008Q3

REPORT INFORMATION
  Report Type: 
  Country: None (occurrence: None)
  Receive Date: 20080925
  Receipt Date: 20080923
  Transmission Date: 20090109
  Serious: Yes (Hospitalization)
  Sender: FDA-Public Use
  Company Number: IT-BRISTOL-MYERS SQUIBB COMPANY-14343859

PATIENT
  Age: 77 Year
  Sex: Female

DRUGS (4)
  1. COUMADIN [Suspect]
     Dates: start: 20030301, end: 20080912
  2. VERAPAMIL [Concomitant]
  3. LANOXIN [Concomitant]
  4. ZESTORETIC [Concomitant]

REACTIONS (2)
  - INTERNATIONAL NORMALISED RATIO DECREASED [None]
  - TRANSIENT ISCHAEMIC ATTACK [None]
